FAERS Safety Report 5661313-9 (Version None)
Quarter: 2008Q1

REPORT INFORMATION
  Report Type: 
  Country: None (occurrence: None)
  Receive Date: 20080312
  Receipt Date: 20080303
  Transmission Date: 20080703
  Serious: Yes (Hospitalization)
  Sender: FDA-Public Use
  Company Number: US-JNJFOC-20080301122

PATIENT
  Sex: Male
  Weight: 72.58 kg

DRUGS (13)
  1. FENTANYL TRANSDERMAL SYSTEM [Suspect]
     Indication: AMPUTATION
     Route: 062
  2. FENTANYL TRANSDERMAL SYSTEM [Suspect]
     Indication: BACK PAIN
     Route: 062
  3. FENTANYL TRANSDERMAL SYSTEM [Suspect]
     Indication: NEURALGIA
     Route: 062
  4. LIPITOR [Concomitant]
     Indication: BLOOD CHOLESTEROL
     Route: 048
  5. PLETAL [Concomitant]
     Indication: CARDIAC DISORDER
     Route: 048
  6. PLAVIX [Concomitant]
     Indication: ANTICOAGULANT THERAPY
     Route: 048
  7. REGLAN [Concomitant]
     Indication: DYSPEPSIA
     Route: 048
  8. IMDUR [Concomitant]
     Indication: CARDIAC DISORDER
     Route: 048
  9. LOPRESSOR [Concomitant]
     Indication: HYPERTENSION
     Route: 048
  10. NEURONTIN [Concomitant]
     Indication: NEUROPATHY PERIPHERAL
     Route: 048
  11. VICODIN [Concomitant]
     Indication: BREAKTHROUGH PAIN
     Dosage: EVERY 4 HOURS AS NEEDED
     Route: 048
  12. XANAX [Concomitant]
     Indication: ANXIETY
     Route: 048
  13. INSULIN [Concomitant]
     Route: 065

REACTIONS (3)
  - GANGRENE [None]
  - PHARMACEUTICAL PRODUCT COMPLAINT [None]
  - WOUND COMPLICATION [None]
